FAERS Safety Report 5775098-9 (Version None)
Quarter: 2008Q2

REPORT INFORMATION
  Report Type: 
  Country: None (occurrence: None)
  Receive Date: 20080617
  Receipt Date: 20080609
  Transmission Date: 20081010
  Serious: Yes (Hospitalization)
  Sender: FDA-Public Use
  Company Number: FR-JNJFOC-20080503582

PATIENT
  Sex: Female

DRUGS (2)
  1. DURAGESIC-100 [Suspect]
     Route: 062
  2. DURAGESIC-100 [Suspect]
     Indication: PAIN
     Dosage: ONCE
     Route: 062

REACTIONS (3)
  - INAPPROPRIATE SCHEDULE OF DRUG ADMINISTRATION [None]
  - LOSS OF CONSCIOUSNESS [None]
  - MALAISE [None]
